FAERS Safety Report 21191453 (Version 1)
Quarter: 2022Q3

REPORT INFORMATION
  Report Type: Spontaneous
  Country: US (occurrence: US)
  Receive Date: 20220809
  Receipt Date: 20220809
  Transmission Date: 20221027
  Serious: No
  Sender: FDA-Public Use
  Company Number: US-JOURNEY MEDICAL CORPORATION-2022JNY00642

PATIENT
  Age: 45 Year
  Weight: 79.365 kg

DRUGS (3)
  1. QBREXZA [Suspect]
     Active Substance: GLYCOPYRRONIUM TOSYLATE
     Indication: Hyperhidrosis
     Dosage: PAD, AS DIRECTED, EXTERNALLY, 1X/DAY AT BEDTIME
     Route: 061
     Dates: start: 20220311, end: 20220318
  2. QBREXZA [Suspect]
     Active Substance: GLYCOPYRRONIUM TOSYLATE
     Dosage: PAD, AS DIRECTED, EXTERNALLY, EVERY 48 HOURS AT BEDTIME
     Route: 061
     Dates: start: 20220319, end: 202203
  3. QBREXZA [Suspect]
     Active Substance: GLYCOPYRRONIUM TOSYLATE
     Dosage: PAD, AS DIRECTED, EXTERNALLY, EVERY 72 HOURS AT BEDTIME
     Dates: start: 202203, end: 20220327

REACTIONS (3)
  - Vision blurred [Recovered/Resolved]
  - Dry eye [Recovered/Resolved]
  - Dry mouth [Recovered/Resolved]

NARRATIVE: CASE EVENT DATE: 20220313
